FAERS Safety Report 25191568 (Version 1)
Quarter: 2025Q2

REPORT INFORMATION
  Report Type: Report from Study
  Country: US (occurrence: US)
  Receive Date: 20250414
  Receipt Date: 20250414
  Transmission Date: 20250716
  Serious: Yes (Other)
  Sender: MYLAN
  Company Number: US-MYLANLABS-2025M1029763

PATIENT

DRUGS (1)
  1. PHENTOLAMINE [Suspect]
     Active Substance: PHENTOLAMINE
     Indication: Product used for unknown indication

REACTIONS (3)
  - Punctate keratitis [Recovering/Resolving]
  - Vision blurred [Recovered/Resolved]
  - Headache [Recovered/Resolved]

NARRATIVE: CASE EVENT DATE: 20250306
